FAERS Safety Report 4631789-4 (Version None)
Quarter: 2005Q2

REPORT INFORMATION
  Report Type: 
  Country: None (occurrence: None)
  Receive Date: 20050330
  Receipt Date: 20040813
  Transmission Date: 20051028
  Serious: Yes (Hospitalization)
  Sender: FDA-Public Use
  Company Number: 04P-163-0268091-00

PATIENT
  Age: 33 Year
  Sex: Male
  Weight: 97.0698 kg

DRUGS (8)
  1. DEPAKENE [Suspect]
     Dosage: PER ORAL
     Route: 048
  2. CLOZAPINE [Suspect]
     Dosage: 100-500 MG DAILY, PER ORAL
     Route: 048
     Dates: start: 20021201
  3. LEVOTHYROXINE SODIUM [Concomitant]
  4. HALOPERIDOL [Concomitant]
  5. LITHIUM CARBONATE [Concomitant]
  6. METFORMIN HCL [Concomitant]
  7. BENZATROPINE [Concomitant]
  8. NICOTINIC ACID [Concomitant]

REACTIONS (2)
  - BLOOD URINE PRESENT [None]
  - THROMBOCYTOPENIA [None]
